FAERS Safety Report 17776239 (Version 3)
Quarter: 2021Q1

REPORT INFORMATION
  Report Type: Report from Study
  Country: US (occurrence: US)
  Receive Date: 20200513
  Receipt Date: 20210205
  Transmission Date: 20210419
  Serious: Yes (Death, Other)
  Sender: FDA-Public Use
  Company Number: US-ACADIA PHARMACEUTICALS INC.-ACA-2019-013223

PATIENT
  Age: 56 Year
  Sex: Female

DRUGS (24)
  1. METHADONE HCL [Concomitant]
     Active Substance: METHADONE HYDROCHLORIDE
  2. SINEMET [Concomitant]
     Active Substance: CARBIDOPA\LEVODOPA
     Dosage: 50?200 MG PER EXTENDED RELEASE TABLET
  3. DOLOPHINE [Concomitant]
     Active Substance: METHADONE HYDROCHLORIDE
     Dosage: 30 MG
  4. TAPAZOLE [Concomitant]
     Active Substance: METHIMAZOLE
  5. MORPHINE [Concomitant]
     Active Substance: MORPHINE
     Dosage: 20 MG/ML OF 100 MG /5 ML CONCENTRATE SOLUTION
  6. CARBIDOPA/LEVODOPA [Concomitant]
     Active Substance: CARBIDOPA\LEVODOPA
  7. GABAPENTIN. [Concomitant]
     Active Substance: GABAPENTIN
     Dosage: UNK
  8. NEURONTIN [Concomitant]
     Active Substance: GABAPENTIN
     Dosage: 800 MG
     Dates: end: 20201227
  9. LEVSIN/SL [Concomitant]
     Dosage: 0.125 MG PRN
  10. ATIVAN [Concomitant]
     Active Substance: LORAZEPAM
  11. NUPLAZID [Suspect]
     Active Substance: PIMAVANSERIN TARTRATE
     Indication: PARKINSON^S DISEASE PSYCHOSIS
     Dosage: 34 MG, QD, MORNING
     Route: 048
     Dates: start: 201904
  12. NUPLAZID [Suspect]
     Active Substance: PIMAVANSERIN TARTRATE
     Indication: DELUSION
     Dosage: 34 MG, QD 6 PM
     Route: 048
     Dates: end: 20201227
  13. DULCOLAX (BISACODYL) [Concomitant]
     Active Substance: BISACODYL
  14. HALDOL [Concomitant]
     Active Substance: HALOPERIDOL
     Dosage: 0.5 MG PRN
  15. OXYCODONE [Concomitant]
     Active Substance: OXYCODONE
  16. TRAMADOL HCL [Concomitant]
     Active Substance: TRAMADOL HYDROCHLORIDE
  17. VITAMIN D [COLECALCIFEROL] [Concomitant]
     Active Substance: CHOLECALCIFEROL
     Dosage: UNK
     Dates: end: 20201227
  18. NEURONTIN [Concomitant]
     Active Substance: GABAPENTIN
     Dosage: 200 MG
     Dates: end: 20201227
  19. MELATONIN [Concomitant]
     Active Substance: MELATONIN
  20. COMPAZINE [Concomitant]
     Active Substance: PROCHLORPERAZINE MALEATE
     Dosage: UNK
     Dates: end: 20201227
  21. NUPLAZID [Suspect]
     Active Substance: PIMAVANSERIN TARTRATE
     Indication: HALLUCINATION
     Dosage: 68 MG, QD
     Route: 048
  22. SINEMET [Concomitant]
     Active Substance: CARBIDOPA\LEVODOPA
     Dosage: 25?100 MG PER TABLET
  23. CYMBALTA [Concomitant]
     Active Substance: DULOXETINE HYDROCHLORIDE
  24. SEROQUEL [Concomitant]
     Active Substance: QUETIAPINE FUMARATE

REACTIONS (7)
  - Parkinson^s disease [Recovered/Resolved]
  - Malnutrition [Recovered/Resolved]
  - Somnolence [Recovering/Resolving]
  - Drug ineffective [Unknown]
  - Decubitus ulcer [Recovered/Resolved]
  - Intentional overdose [Unknown]
  - Failure to thrive [Recovered/Resolved]

NARRATIVE: CASE EVENT DATE: 200506
